FAERS Safety Report 18107012 (Version 2)
Quarter: 2020Q3

REPORT INFORMATION
  Report Type: Spontaneous
  Country: US (occurrence: US)
  Receive Date: 20200803
  Receipt Date: 20200810
  Transmission Date: 20201103
  Serious: No
  Sender: FDA-Public Use
  Company Number: US-PFIZER INC-2020292100

PATIENT
  Age: 60 Year
  Sex: Female

DRUGS (1)
  1. EUCRISA [Suspect]
     Active Substance: CRISABOROLE
     Dosage: UNK, 2X/DAY (APPLY A THIN LAYER TO AFFECTED AREA TWICE A DAY QTY: 1.00)
     Dates: start: 20200727

REACTIONS (2)
  - Joint instability [Unknown]
  - Dermatitis atopic [Unknown]
